FAERS Safety Report 12873260 (Version 3)
Quarter: 2016Q4

REPORT INFORMATION
  Report Type: Spontaneous
  Country: ES (occurrence: ES)
  Receive Date: 20161021
  Receipt Date: 20161129
  Transmission Date: 20170207
  Serious: Yes (Death, Other)
  Sender: FDA-Public Use
  Company Number: PHHY2016ES142432

PATIENT
  Age: 64 Year
  Sex: Female

DRUGS (20)
  1. PREDNISONE. [Suspect]
     Active Substance: PREDNISONE
     Dosage: 2 MG/G, QD
     Route: 065
     Dates: start: 197802
  2. PREDNISONE. [Suspect]
     Active Substance: PREDNISONE
     Dosage: 2 MG/KG, QD
     Route: 065
     Dates: start: 201202
  3. PREDNISONE. [Suspect]
     Active Substance: PREDNISONE
     Dosage: 75 MG, QD
     Route: 065
     Dates: start: 20121112
  4. REVOLADE [Suspect]
     Active Substance: ELTROMBOPAG
     Dosage: 75 MG, QD
     Route: 065
     Dates: start: 201412
  5. AZATHIOPRINE. [Suspect]
     Active Substance: AZATHIOPRINE
     Indication: IMMUNE THROMBOCYTOPENIC PURPURA
     Dosage: 150 MG, QD
     Route: 065
     Dates: start: 20130406
  6. DEXAMETHASONE. [Suspect]
     Active Substance: DEXAMETHASONE
     Dosage: 40 MG, 4D (BIMONTHLY)
     Route: 065
     Dates: start: 201412
  7. PREDNISONE. [Suspect]
     Active Substance: PREDNISONE
     Indication: IMMUNE THROMBOCYTOPENIC PURPURA
     Dosage: 30 MG, QD
     Route: 065
     Dates: start: 201301
  8. DAPSON [Suspect]
     Active Substance: DAPSONE
     Indication: IMMUNE THROMBOCYTOPENIC PURPURA
     Dosage: UNK
     Route: 065
     Dates: start: 201312
  9. OSELTAMIVIR [Concomitant]
     Active Substance: OSELTAMIVIR
     Indication: INFLUENZA A VIRUS TEST
  10. REVOLADE [Suspect]
     Active Substance: ELTROMBOPAG
     Indication: IMMUNE THROMBOCYTOPENIC PURPURA
     Dosage: 50 MG, QD
     Route: 065
     Dates: start: 20120514
  11. RITUXIMAB [Suspect]
     Active Substance: RITUXIMAB
     Indication: IMMUNE THROMBOCYTOPENIC PURPURA
     Dosage: 600 MG,(WEEKLY 4 DOSES)
     Route: 065
     Dates: start: 20130329
  12. ROMIPLOSTIM [Suspect]
     Active Substance: ROMIPLOSTIM
     Indication: IMMUNE THROMBOCYTOPENIC PURPURA
     Dosage: ()10 UG/KG, QW (16 DOSES)
     Route: 065
     Dates: start: 20130506
  13. REVOLADE [Suspect]
     Active Substance: ELTROMBOPAG
     Dosage: 75 MG, QD
     Route: 065
     Dates: start: 20121112
  14. PREDNISONE. [Suspect]
     Active Substance: PREDNISONE
     Dosage: 50 MG, QD
     Route: 065
     Dates: start: 20120514
  15. REVOLADE [Suspect]
     Active Substance: ELTROMBOPAG
     Dosage: 75 MG, QD
     Route: 065
     Dates: start: 201301
  16. CICLOSPORIN [Suspect]
     Active Substance: CYCLOSPORINE
     Indication: IMMUNE THROMBOCYTOPENIC PURPURA
     Dosage: 100 MG, QD
     Route: 065
  17. PREDNISONE. [Suspect]
     Active Substance: PREDNISONE
     Dosage: 2 MG/KG, QD
     Route: 065
     Dates: start: 201201
  18. VINBLASTIN [Suspect]
     Active Substance: VINBLASTINE
     Indication: IMMUNE THROMBOCYTOPENIC PURPURA
     Dosage: 6 MG,  (3 DAYS)
     Route: 042
     Dates: start: 20131015
  19. DEXAMETHASONE. [Suspect]
     Active Substance: DEXAMETHASONE
     Indication: IMMUNE THROMBOCYTOPENIC PURPURA
     Dosage: 40 MG, QD
     Route: 065
     Dates: start: 201409
  20. DANAZOL. [Suspect]
     Active Substance: DANAZOL
     Indication: IMMUNE THROMBOCYTOPENIC PURPURA
     Dosage: 200 MG, QD
     Route: 065
     Dates: start: 20130420

REACTIONS (3)
  - Progressive multifocal leukoencephalopathy [Unknown]
  - Osteoporosis [Unknown]
  - Nervous system disorder [Fatal]

NARRATIVE: CASE EVENT DATE: 201309
